FAERS Safety Report 9944538 (Version 1)
Quarter: 2014Q1

REPORT INFORMATION
  Report Type: Report from Study
  Country: US (occurrence: US)
  Receive Date: 20140303
  Receipt Date: 20140303
  Transmission Date: 20141002
  Serious: No
  Sender: FDA-Public Use
  Company Number: US-ABBVIE-13P-163-1053286-00

PATIENT
  Age: 49 Year
  Sex: Male

DRUGS (3)
  1. HUMIRA [Suspect]
     Indication: RHEUMATOID ARTHRITIS
     Dates: start: 2005
  2. PERCOCET [Concomitant]
     Indication: PAIN
  3. HALCION [Concomitant]
     Indication: INSOMNIA
     Dosage: EVERY NIGHT

REACTIONS (3)
  - Drug dose omission [Unknown]
  - Mobility decreased [Unknown]
  - Pain [Unknown]
